FAERS Safety Report 16928385 (Version 1)
Quarter: 2019Q4

REPORT INFORMATION
  Report Type: Spontaneous
  Country: US (occurrence: US)
  Receive Date: 20191017
  Receipt Date: 20191017
  Transmission Date: 20200122
  Serious: Yes (Other)
  Sender: FDA-Public Use
  Company Number: US-EMCURE PHARMACEUTICALS LTD-2019-EPL-0919

PATIENT
  Age: 20 Year
  Sex: Female

DRUGS (1)
  1. DOXYCYCLINE HYCLATE. [Suspect]
     Active Substance: DOXYCYCLINE HYCLATE
     Indication: ACNE
     Dosage: UNK

REACTIONS (2)
  - Cholangitis sclerosing [Unknown]
  - Colitis ulcerative [Unknown]
